FAERS Safety Report 4517963-6 (Version None)
Quarter: 2004Q4

REPORT INFORMATION
  Report Type: 
  Country: None (occurrence: None)
  Receive Date: 20041130
  Receipt Date: 20041117
  Transmission Date: 20050328
  Serious: Yes (Hospitalization)
  Sender: FDA-Public Use
  Company Number: STA-AE-04-MTX-575

PATIENT
  Age: 55 Year
  Sex: Female

DRUGS (2)
  1. METHOTREXATE [Suspect]
     Indication: RHEUMATOID ARTHRITIS
     Dosage: 10 MG 1X PER 1 WK
     Dates: start: 20030401, end: 20040101
  2. ENBREL [Suspect]
     Indication: RHEUMATOID ARTHRITIS
     Dosage: 25 MG 2X PER 1 WK, SC
     Route: 058
     Dates: start: 20020411, end: 20040101

REACTIONS (6)
  - BONE PAIN [None]
  - EMPYEMA [None]
  - HYPERHIDROSIS [None]
  - JOINT SWELLING [None]
  - PAIN IN EXTREMITY [None]
  - SEPTIC ARTHRITIS STAPHYLOCOCCAL [None]
